FAERS Safety Report 7943233 (Version 5)
Quarter: 2013Q3

REPORT INFORMATION
  Report Type: Spontaneous
  Country: US (occurrence: US)
  Receive Date: 20110513
  Receipt Date: 20130827
  Transmission Date: 20140515
  Serious: No
  Sender: FDA-Public Use
  Company Number: US-BIOGENIDEC-2011BI017075

PATIENT
  Age: 33 Year
  Sex: Female

DRUGS (3)
  1. TYSABRI [Suspect]
     Indication: MULTIPLE SCLEROSIS
     Route: 042
     Dates: start: 20110124
  2. BENADRYL [Concomitant]
     Indication: PREMEDICATION
  3. ADDERAL [Concomitant]
     Indication: FATIGUE
     Dates: start: 2012

REACTIONS (6)
  - Pain [Recovered/Resolved]
  - Memory impairment [Not Recovered/Not Resolved]
  - Hypersensitivity [Recovered/Resolved]
  - Headache [Recovered/Resolved]
  - Sluggishness [Recovered/Resolved]
  - Fatigue [Not Recovered/Not Resolved]
